FAERS Safety Report 9190916 (Version 2)
Quarter: 2013Q2

REPORT INFORMATION
  Report Type: Spontaneous
  Country: JP (occurrence: JP)
  Receive Date: 20130326
  Receipt Date: 20130409
  Transmission Date: 20140414
  Serious: Yes (Other)
  Sender: FDA-Public Use
  Company Number: JP-GLAXOSMITHKLINE-B0877149A

PATIENT
  Age: 86 Year
  Sex: Female

DRUGS (15)
  1. LAMICTAL [Suspect]
     Indication: BIPOLAR DISORDER
     Dosage: 25MG TWICE PER DAY
     Route: 048
     Dates: start: 20121203, end: 20121220
  2. LAMICTAL [Suspect]
     Indication: BIPOLAR DISORDER
     Route: 048
     Dates: start: 20121221, end: 20130115
  3. LAMICTAL [Suspect]
     Indication: BIPOLAR DISORDER
     Route: 048
     Dates: start: 20130116, end: 20130203
  4. LAMICTAL [Suspect]
     Indication: BIPOLAR DISORDER
     Route: 048
     Dates: start: 20130204, end: 20130224
  5. LAMICTAL [Suspect]
     Indication: BIPOLAR DISORDER
     Route: 048
     Dates: start: 20130225, end: 20130307
  6. LAMICTAL [Suspect]
     Indication: BIPOLAR DISORDER
     Route: 048
     Dates: start: 20130308, end: 20130314
  7. LAMICTAL [Suspect]
     Indication: BIPOLAR DISORDER
     Dosage: 200MG TWICE PER DAY
     Route: 048
     Dates: start: 20130315, end: 20130317
  8. LAMICTAL [Suspect]
     Indication: BIPOLAR DISORDER
     Route: 048
     Dates: start: 20130318, end: 20130321
  9. LAMICTAL [Suspect]
     Indication: BIPOLAR DISORDER
     Route: 048
     Dates: start: 20130322, end: 20130328
  10. SIGMART [Concomitant]
     Dosage: 2.5MG THREE TIMES PER DAY
     Route: 048
  11. ANGINAL [Concomitant]
     Route: 048
  12. LANSOPRAZOLE [Concomitant]
     Dosage: 15MG PER DAY
     Route: 048
  13. MICARDIS [Concomitant]
     Dosage: 40MG PER DAY
     Route: 048
  14. ADALAT-CR [Concomitant]
     Dosage: 10MG PER DAY
     Route: 048
  15. CIBENOL [Concomitant]
     Dosage: 100MG PER DAY
     Route: 048

REACTIONS (3)
  - Delirium [Unknown]
  - Sedation [Unknown]
  - Oxygen saturation decreased [Unknown]
